FAERS Safety Report 8966243 (Version 1)
Quarter: 2012Q4

REPORT INFORMATION
  Report Type: 
  Country: ZA (occurrence: ZA)
  Receive Date: 20121217
  Receipt Date: 20121217
  Transmission Date: 20130627
  Serious: Yes (Other)
  Sender: FDA-Public Use
  Company Number: ZA-JNJFOC-20121204781

PATIENT
  Sex: Female
  Weight: 70 kg

DRUGS (1)
  1. EVRA [Suspect]
     Indication: CONTRACEPTION
     Route: 062
     Dates: start: 2012

REACTIONS (2)
  - Gastric ulcer [Unknown]
  - Inappropriate schedule of drug administration [Unknown]
